FAERS Safety Report 11642542 (Version 2)
Quarter: 2015Q4

REPORT INFORMATION
  Report Type: Report from Study
  Country: US (occurrence: US)
  Receive Date: 20151020
  Receipt Date: 20151028
  Transmission Date: 20160304
  Serious: No
  Sender: FDA-Public Use
  Company Number: US-AMGEN-USASP2015104926

PATIENT
  Age: 72 Year
  Sex: Male

DRUGS (1)
  1. ENBREL [Suspect]
     Active Substance: ETANERCEPT
     Indication: DYSHIDROTIC ECZEMA
     Dosage: 50 MG, QWK
     Route: 065

REACTIONS (4)
  - Wrong technique in product usage process [Unknown]
  - Off label use [Unknown]
  - Device issue [Unknown]
  - Feeling abnormal [Unknown]

NARRATIVE: CASE EVENT DATE: 20151006
